FAERS Safety Report 18958266 (Version 1)
Quarter: 2021Q1

REPORT INFORMATION
  Report Type: Spontaneous
  Country: US (occurrence: US)
  Receive Date: 20210302
  Receipt Date: 20210302
  Transmission Date: 20210420
  Serious: Yes (Death)
  Sender: FDA-Public Use
  Company Number: None

PATIENT
  Age: 67 Year
  Sex: Male

DRUGS (18)
  1. DIPHENHYDRAMINE 50 MG/ML VIAL [Concomitant]
  2. FUROSEMIDE. [Concomitant]
     Active Substance: FUROSEMIDE
  3. PREDNISONE. [Concomitant]
     Active Substance: PREDNISONE
  4. RITALIN [Concomitant]
     Active Substance: METHYLPHENIDATE HYDROCHLORIDE
  5. LISINOPRIL. [Concomitant]
     Active Substance: LISINOPRIL
  6. FAMOTIDINE 20 MG/2 ML VIAL [Concomitant]
  7. ONDANSETRON 4 MG/2 ML VIAL [Concomitant]
  8. MEGESTROL ACETATE. [Concomitant]
     Active Substance: MEGESTROL ACETATE
  9. PANTOPRAZOLE SODIUM. [Concomitant]
     Active Substance: PANTOPRAZOLE SODIUM
  10. GEMCITABINE. [Suspect]
     Active Substance: GEMCITABINE
     Dosage: ?          OTHER FREQUENCY:WEEKLY;?
     Route: 042
  11. DECADRON [Concomitant]
     Active Substance: DEXAMETHASONE
  12. DEXAMETHASONE 10 MG/ML VIAL PF [Concomitant]
  13. CARVEDILOL. [Concomitant]
     Active Substance: CARVEDILOL
  14. VINORELBINE [Suspect]
     Active Substance: VINORELBINE TARTRATE
     Dosage: ?          OTHER FREQUENCY:WEEKLY;?
     Route: 042
  15. ATORVASTATIN CALCIUM. [Concomitant]
     Active Substance: ATORVASTATIN CALCIUM
  16. OXYCODONE HYDROCHLORIDE. [Concomitant]
     Active Substance: OXYCODONE HYDROCHLORIDE
  17. ASPIRIN 81 [Concomitant]
     Active Substance: ASPIRIN
  18. ROSUVASTATIN CALCIUM. [Concomitant]
     Active Substance: ROSUVASTATIN CALCIUM

REACTIONS (1)
  - Death [None]

NARRATIVE: CASE EVENT DATE: 20210302
